FAERS Safety Report 25416549 (Version 1)
Quarter: 2025Q2

REPORT INFORMATION
  Report Type: Spontaneous
  Country: US (occurrence: US)
  Receive Date: 20250610
  Receipt Date: 20250610
  Transmission Date: 20250717
  Serious: No
  Sender: SUNOVION
  Company Number: US-SMPA-2025SPA006073AA

PATIENT

DRUGS (6)
  1. ORGOVYX [Suspect]
     Active Substance: RELUGOLIX
     Indication: Prostate cancer
     Dosage: 360 MG, SINGLE
     Route: 048
     Dates: start: 20250508, end: 20250508
  2. ORGOVYX [Suspect]
     Active Substance: RELUGOLIX
     Dosage: 120 MG, QD
     Route: 048
     Dates: start: 20250509
  3. ASPIRIN [Concomitant]
     Active Substance: ASPIRIN
     Route: 065
  4. CIALIS [Concomitant]
     Active Substance: TADALAFIL
     Route: 065
  5. LOSARTAN [Concomitant]
     Active Substance: LOSARTAN
     Route: 065
  6. LUPRON [Concomitant]
     Active Substance: LEUPROLIDE ACETATE
     Route: 065

REACTIONS (3)
  - Dry eye [Unknown]
  - Lip dry [Unknown]
  - Pruritus [Unknown]
